FAERS Safety Report 7773004-9 (Version None)
Quarter: 2011Q3

REPORT INFORMATION
  Report Type: 
  Country: None (occurrence: None)
  Receive Date: 20110922
  Receipt Date: 20101214
  Transmission Date: 20111222
  Serious: No
  Sender: FDA-Public Use
  Company Number: US-ASTRAZENECA-2010SE59064

PATIENT
  Age: 75 Year
  Sex: Female
  Weight: 63.5 kg

DRUGS (5)
  1. SEROQUEL [Suspect]
     Indication: DEPRESSION
     Route: 048
     Dates: start: 20101101
  2. HYDROCODONE BITARTRATE AND ACETAMINOPHEN [Concomitant]
  3. OMEPRAZOLE [Concomitant]
     Indication: HYPERCHLORHYDRIA
  4. SEROQUEL [Suspect]
     Dosage: ONCE DAILY
     Route: 048
     Dates: end: 20101201
  5. VITAMIN TAB [Concomitant]

REACTIONS (5)
  - FATIGUE [None]
  - DRUG DOSE OMISSION [None]
  - VISUAL IMPAIRMENT [None]
  - INAPPROPRIATE SCHEDULE OF DRUG ADMINISTRATION [None]
  - SOMNOLENCE [None]
